FAERS Safety Report 8988381 (Version 1)
Quarter: 2012Q4

REPORT INFORMATION
  Report Type: Spontaneous
  Country: FR (occurrence: None)
  Receive Date: 20121218
  Receipt Date: 20121218
  Transmission Date: 20130627
  Serious: Yes (Other)
  Sender: FDA-Public Use
  Company Number: DSA_61424_2012

PATIENT
  Age: 37 Year
  Sex: Female

DRUGS (4)
  1. FLUOROURACIL (FLUOROURACIL) [Suspect]
     Route: 040
  2. FLUOROURACIL (FLUOROURACIL) [Suspect]
     Dosage: 44h infusion
     Route: 042
  3. FOLINIC ACID [Suspect]
     Dosage: 2h infusion
     Route: 042
  4. IRINOTECAN (IRINOTECAN) [Suspect]
     Dosage: 1x/2 weeks

REACTIONS (1)
  - Diarrhoea [None]
